FAERS Safety Report 9093395 (Version 1)
Quarter: 2013Q1

REPORT INFORMATION
  Report Type: Spontaneous
  Country: US (occurrence: US)
  Receive Date: 20130131
  Receipt Date: 20130131
  Transmission Date: 20140127
  Serious: No
  Sender: FDA-Public Use
  Company Number: US-ABBOTT-12P-163-1002913-00

PATIENT
  Age: 65 Year
  Sex: Female
  Weight: 62.65 kg

DRUGS (8)
  1. HUMIRA [Suspect]
     Route: 058
     Dates: start: 201209
  2. METOPROLOL (NON-ABBOTT) [Concomitant]
     Indication: HYPERTENSION
  3. LASIX (NON-ABBOTT) [Concomitant]
     Indication: FLUID RETENTION
  4. CYMBALTA [Concomitant]
     Indication: BACK PAIN
  5. CYMBALTA [Concomitant]
     Indication: ARTHRALGIA
  6. MIRAPEX [Concomitant]
     Indication: RESTLESS LEGS SYNDROME
  7. SIMVASTATIN [Concomitant]
     Indication: BLOOD CHOLESTEROL INCREASED
  8. PREDNISONE (NON-ABBOTT) [Concomitant]
     Indication: RHEUMATOID ARTHRITIS

REACTIONS (5)
  - Injection site rash [Recovered/Resolved]
  - Injection site pruritus [Recovered/Resolved]
  - Injection site swelling [Recovered/Resolved]
  - Urticaria [Not Recovered/Not Resolved]
  - Injection site erythema [Not Recovered/Not Resolved]
